FAERS Safety Report 4729017-4 (Version None)
Quarter: 2005Q3

REPORT INFORMATION
  Report Type: 
  Country: None (occurrence: None)
  Receive Date: 20050729
  Receipt Date: 20050121
  Transmission Date: 20060218
  Serious: No
  Sender: FDA-Public Use
  Company Number: US-GLAXOSMITHKLINE-A0541747A

PATIENT
  Age: 55 Year
  Sex: Female

DRUGS (3)
  1. IMITREX [Suspect]
     Indication: MIGRAINE
     Dosage: 25MG AS REQUIRED
     Route: 048
     Dates: start: 20050118
  2. VITAMINS [Concomitant]
  3. HORMONES [Concomitant]

REACTIONS (10)
  - ANXIETY [None]
  - DIARRHOEA [None]
  - DIZZINESS [None]
  - FEELING COLD [None]
  - FEELING HOT [None]
  - HEART RATE INCREASED [None]
  - PARAESTHESIA [None]
  - THROAT IRRITATION [None]
  - THROAT TIGHTNESS [None]
  - TREMOR [None]
